FAERS Safety Report 14392846 (Version 1)
Quarter: 2018Q1

REPORT INFORMATION
  Report Type: Spontaneous
  Country: US (occurrence: US)
  Receive Date: 20180113
  Receipt Date: 20180113
  Transmission Date: 20180509
  Serious: Yes (Life-Threatening)
  Sender: FDA-Public Use
  Company Number: None

PATIENT
  Age: 39 Year
  Sex: Female
  Weight: 54 kg

DRUGS (3)
  1. VITAMIN C [Concomitant]
     Active Substance: ASCORBIC ACID
  2. PRISTIQ EXTENDED-RELEASE [Suspect]
     Active Substance: DESVENLAFAXINE SUCCINATE
     Indication: DEPRESSION
     Dosage: ?          QUANTITY:1 TABLET(S);?
     Route: 048
  3. VITAMIN B12 [Concomitant]
     Active Substance: CYANOCOBALAMIN

REACTIONS (12)
  - Social avoidant behaviour [None]
  - Loss of personal independence in daily activities [None]
  - Asthenia [None]
  - Drug intolerance [None]
  - Suicidal ideation [None]
  - Irritability [None]
  - Agitation [None]
  - Confusional state [None]
  - Depressed mood [None]
  - Mood swings [None]
  - Cold sweat [None]
  - Decreased appetite [None]

NARRATIVE: CASE EVENT DATE: 20180110
